FAERS Safety Report 21697526 (Version 1)
Quarter: 2022Q4

REPORT INFORMATION
  Report Type: Spontaneous
  Country: CA (occurrence: CA)
  Receive Date: 20221208
  Receipt Date: 20221208
  Transmission Date: 20230113
  Serious: Yes (Disabling, Other)
  Sender: FDA-Public Use
  Company Number: CA-TEVA-2022-CA-2832770

PATIENT
  Age: 28 Year
  Sex: Female

DRUGS (3)
  1. DOXYCYCLINE [Suspect]
     Active Substance: DOXYCYCLINE
     Indication: Acne
     Dosage: 100 MILLIGRAM DAILY; THERAPY DURATION : 32.0 DAYS
     Route: 048
  2. CLINDOXYL [Concomitant]
     Active Substance: BENZOYL PEROXIDE\CLINDAMYCIN PHOSPHATE
     Indication: Product used for unknown indication
  3. DIFFERIN [Concomitant]
     Active Substance: ADAPALENE
     Indication: Product used for unknown indication

REACTIONS (4)
  - Idiopathic intracranial hypertension [Unknown]
  - Vision blurred [Unknown]
  - Visual acuity reduced [Unknown]
  - Vitreous floaters [Unknown]
